FAERS Safety Report 10016840 (Version 2)
Quarter: 2014Q1

REPORT INFORMATION
  Report Type: Report from Study
  Country: BR (occurrence: BR)
  Receive Date: 20140318
  Receipt Date: 20140318
  Transmission Date: 20141002
  Serious: Yes (Other)
  Sender: FDA-Public Use
  Company Number: BR-ROCHE-1347922

PATIENT
  Sex: Female
  Weight: 52 kg

DRUGS (2)
  1. MABTHERA [Suspect]
     Indication: RHEUMATOID ARTHRITIS
     Route: 042
  2. OMEPRAZOLE [Concomitant]
     Indication: GASTRIC DISORDER

REACTIONS (4)
  - Depression [Recovering/Resolving]
  - Somnolence [Recovered/Resolved]
  - Blood pressure increased [Recovering/Resolving]
  - Pyrexia [Recovered/Resolved]
